FAERS Safety Report 6232924-7 (Version None)
Quarter: 2009Q2

REPORT INFORMATION
  Report Type: 
  Country: None (occurrence: None)
  Receive Date: 20090612
  Receipt Date: 20090612
  Transmission Date: 20091009
  Serious: Yes (Hospitalization)
  Sender: FDA-Public Use
  Company Number: None

PATIENT
  Age: 39 Year
  Sex: Female
  Weight: 65.7716 kg

DRUGS (2)
  1. CEFACLOR [Suspect]
     Indication: SINUS CONGESTION
     Dosage: 1 CAPSULE 3 TIMES DAILY PO  (1 DOSE ONLY)
     Route: 048
     Dates: start: 20090608, end: 20090608
  2. CEFACLOR [Suspect]
     Indication: SINUSITIS
     Dosage: 1 CAPSULE 3 TIMES DAILY PO  (1 DOSE ONLY)
     Route: 048
     Dates: start: 20090608, end: 20090608

REACTIONS (3)
  - CHEST PAIN [None]
  - DYSPNOEA [None]
  - PRURITUS GENERALISED [None]
